FAERS Safety Report 4928743-1 (Version None)
Quarter: 2006Q1

REPORT INFORMATION
  Report Type: 
  Country: None (occurrence: None)
  Receive Date: 20060227
  Receipt Date: 20060227
  Transmission Date: 20060701
  Serious: Yes (Life-Threatening, Hospitalization)
  Sender: FDA-Public Use
  Company Number: None

PATIENT
  Sex: Male
  Weight: 94 kg

DRUGS (1)
  1. TEMOZOLOMIDE   75 MG/M2    SCHERING PLOUGH [Suspect]
     Indication: MIXED OLIGO-ASTROCYTOMA
     Dosage: 75 MG/M2   X 49 DAYS  PO
     Route: 048
     Dates: start: 20050429, end: 20060209

REACTIONS (11)
  - CHOLELITHIASIS [None]
  - CONTUSION [None]
  - HEPATIC LESION [None]
  - HERPES VIRUS INFECTION [None]
  - IDIOPATHIC THROMBOCYTOPENIC PURPURA [None]
  - LUNG NEOPLASM [None]
  - LYMPHADENOPATHY [None]
  - MOUTH HAEMORRHAGE [None]
  - MOUTH ULCERATION [None]
  - OEDEMA [None]
  - UPPER RESPIRATORY TRACT INFECTION [None]
